FAERS Safety Report 7137156-6 (Version None)
Quarter: 2010Q4

REPORT INFORMATION
  Report Type: 
  Country: None (occurrence: None)
  Receive Date: 20101206
  Receipt Date: 20081126
  Transmission Date: 20110411
  Serious: Yes (Death)
  Sender: FDA-Public Use
  Company Number: CA-ACTELION-A-US2006-13929

PATIENT

DRUGS (1)
  1. BOSENTAN TABLET 62.5 MG CD [Suspect]
     Indication: PULMONARY HYPERTENSION
     Dosage: 62.5 MG, UNK
     Route: 048
     Dates: start: 20061209

REACTIONS (8)
  - ABDOMINAL DISCOMFORT [None]
  - ASTHENIA [None]
  - ASTHMA [None]
  - CHEST PAIN [None]
  - DEATH [None]
  - HEART RATE INCREASED [None]
  - OEDEMA PERIPHERAL [None]
  - SWELLING FACE [None]
